FAERS Safety Report 8870111 (Version 1)
Quarter: 2012Q4

REPORT INFORMATION
  Report Type: 
  Country: US (occurrence: US)
  Receive Date: 20121023
  Receipt Date: 20121023
  Transmission Date: 20130627
  Serious: No
  Sender: FDA-Public Use
  Company Number: US-AMGEN-USASP2011023714

PATIENT
  Age: 27 Year
  Sex: Female

DRUGS (2)
  1. ENBREL [Suspect]
     Indication: RHEUMATOID ARTHRITIS
     Dosage: 25 mg, 2 times/wk
     Route: 058
     Dates: start: 200307
  2. PRENATAL                           /00231801/ [Concomitant]
     Dosage: UNK UNK, qd
     Route: 048

REACTIONS (2)
  - Wrist surgery [Unknown]
  - Rheumatoid arthritis [Unknown]
